FAERS Safety Report 16648215 (Version 1)
Quarter: 2019Q3

REPORT INFORMATION
  Report Type: Spontaneous
  Country: NL (occurrence: BE)
  Receive Date: 20190730
  Receipt Date: 20190730
  Transmission Date: 20191004
  Serious: Yes (Death, Other)
  Sender: FDA-Public Use
  Company Number: BE-FRESENIUS KABI-FK201908396

PATIENT
  Sex: Male
  Weight: 84 kg

DRUGS (3)
  1. CARBOPLATIN (MANUFACTURER UNKNOWN) [Suspect]
     Active Substance: CARBOPLATIN
     Indication: MESOTHELIOMA MALIGNANT
     Route: 065
     Dates: start: 201811, end: 201812
  2. NIVOLUMAB [Suspect]
     Active Substance: NIVOLUMAB
     Indication: MESOTHELIOMA MALIGNANT
     Dosage: 3 MILLIGRAM/KILOGRAM
     Route: 065
     Dates: end: 201903
  3. PEMETREXED. [Suspect]
     Active Substance: PEMETREXED
     Indication: MESOTHELIOMA MALIGNANT
     Route: 065
     Dates: start: 201811, end: 201812

REACTIONS (2)
  - Product use in unapproved indication [Unknown]
  - Anaphylactic shock [Fatal]

NARRATIVE: CASE EVENT DATE: 20181224
